FAERS Safety Report 17674700 (Version 4)
Quarter: 2020Q2

REPORT INFORMATION
  Report Type: Report from Study
  Country: US (occurrence: US)
  Receive Date: 20200416
  Receipt Date: 20200626
  Transmission Date: 20200714
  Serious: Yes (Other)
  Sender: FDA-Public Use
  Company Number: NVSC2020US101426

PATIENT
  Sex: Female

DRUGS (2)
  1. PRILOSEC [Suspect]
     Active Substance: OMEPRAZOLE MAGNESIUM
     Indication: PRODUCT USED FOR UNKNOWN INDICATION
     Dosage: UNK
     Route: 065
  2. PIQRAY [Suspect]
     Active Substance: ALPELISIB
     Indication: PRODUCT USED FOR UNKNOWN INDICATION
     Dosage: UNK
     Route: 048

REACTIONS (26)
  - Loss of consciousness [Unknown]
  - Oral pain [Unknown]
  - Diarrhoea [Unknown]
  - Nausea [Unknown]
  - Hypotension [Unknown]
  - Tooth loss [Unknown]
  - Tooth infection [Unknown]
  - Blood glucose increased [Unknown]
  - Dizziness [Unknown]
  - Oropharyngeal pain [Unknown]
  - Insomnia [Unknown]
  - Constipation [Unknown]
  - Pharyngeal erythema [Unknown]
  - Fatigue [Unknown]
  - Blood sodium decreased [Unknown]
  - Somnolence [Unknown]
  - Oral infection [Unknown]
  - Head injury [Unknown]
  - Stomatitis [Unknown]
  - Fall [Unknown]
  - Joint swelling [Unknown]
  - Decreased appetite [Unknown]
  - Intestinal obstruction [Unknown]
  - Weight increased [Unknown]
  - Dehydration [Unknown]
  - Asthenia [Unknown]
